FAERS Safety Report 9361355 (Version 1)
Quarter: 2013Q2

REPORT INFORMATION
  Report Type: Spontaneous
  Country: DE (occurrence: DE)
  Receive Date: 20130621
  Receipt Date: 20130621
  Transmission Date: 20140414
  Serious: Yes (Death, Other)
  Sender: FDA-Public Use
  Company Number: DE-JNJFOC-20130608952

PATIENT
  Sex: 0

DRUGS (2)
  1. RISPERIDONE [Suspect]
     Indication: SCHIZOAFFECTIVE DISORDER
     Route: 030
  2. RISPERIDONE [Suspect]
     Indication: SCHIZOPHRENIA
     Route: 030

REACTIONS (16)
  - Completed suicide [Fatal]
  - Homicidal ideation [Unknown]
  - Mental disorder [Unknown]
  - Self injurious behaviour [Unknown]
  - Suicidal ideation [Unknown]
  - Aggression [Unknown]
  - Hyperprolactinaemia [Unknown]
  - Weight increased [Unknown]
  - Headache [Unknown]
  - Somnolence [Unknown]
  - Extrapyramidal disorder [Unknown]
  - Tremor [Unknown]
  - Hyperkinesia [Unknown]
  - Parkinsonism [Unknown]
  - Psychotic disorder [Unknown]
  - Drug ineffective [Unknown]
